FAERS Safety Report 6903441-3 (Version None)
Quarter: 2010Q3

REPORT INFORMATION
  Report Type: 
  Country: None (occurrence: None)
  Receive Date: 20100803
  Receipt Date: 20080930
  Transmission Date: 20110219
  Serious: No
  Sender: FDA-Public Use
  Company Number: US-PFIZER INC-2008083515

PATIENT
  Sex: Male
  Weight: 97.7 kg

DRUGS (6)
  1. LYRICA [Suspect]
     Indication: NEUROPATHY PERIPHERAL
     Dates: start: 20080101
  2. LOSARTAN [Concomitant]
  3. HYDROCHLOROTHIAZIDE [Concomitant]
  4. FIORICET [Concomitant]
  5. TRAMADOL HYDROCHLORIDE [Concomitant]
  6. PROMETHAZINE [Concomitant]

REACTIONS (4)
  - FORMICATION [None]
  - PARAESTHESIA [None]
  - POLLAKIURIA [None]
  - WITHDRAWAL SYNDROME [None]
